FAERS Safety Report 5404195-2 (Version None)
Quarter: 2007Q3

REPORT INFORMATION
  Report Type: 
  Country: None (occurrence: None)
  Receive Date: 20070802
  Receipt Date: 20070725
  Transmission Date: 20080115
  Serious: Yes (Other)
  Sender: FDA-Public Use
  Company Number: US-ROCHE-461711

PATIENT
  Sex: Male
  Weight: 3.5 kg

DRUGS (1)
  1. ACCUTANE [Suspect]
     Dates: start: 19910801, end: 19911204

REACTIONS (2)
  - NO ADVERSE REACTION [None]
  - NORMAL NEWBORN [None]
